FAERS Safety Report 7718796-X (Version None)
Quarter: 2011Q3

REPORT INFORMATION
  Report Type: 
  Country: None (occurrence: None)
  Receive Date: 20110830
  Receipt Date: 20110824
  Transmission Date: 20111222
  Serious: Yes (Life-Threatening)
  Sender: FDA-Public Use
  Company Number: DE-PFIZER INC-2011196997

PATIENT
  Age: 80 Year
  Sex: Male

DRUGS (1)
  1. ECALTA [Suspect]
     Indication: CANDIDIASIS
     Route: 042

REACTIONS (1)
  - ANAPHYLACTIC SHOCK [None]
